FAERS Safety Report 8513860-X (Version None)
Quarter: 2012Q3

REPORT INFORMATION
  Report Type: 
  Country: None (occurrence: None)
  Receive Date: 20120705
  Receipt Date: 20120622
  Transmission Date: 20120928
  Serious: Yes (Hospitalization, Disabling, Other)
  Sender: FDA-Public Use
  Company Number: 2011SP056193

PATIENT
  Age: 40 Year
  Sex: Female
  Weight: 106.5953 kg

DRUGS (2)
  1. NUVARING [Suspect]
     Indication: CONTRACEPTION
     Dates: start: 20060901, end: 20081222
  2. NUVARING [Suspect]
     Indication: CONTRACEPTION
     Dates: end: 20040101

REACTIONS (17)
  - MENTAL DISORDER [None]
  - PULMONARY EMBOLISM [None]
  - RENAL FAILURE ACUTE [None]
  - DEHYDRATION [None]
  - ANXIETY [None]
  - HYPOTHYROIDISM [None]
  - OSTEOARTHRITIS [None]
  - VAGINAL INFECTION [None]
  - BASAL CELL CARCINOMA [None]
  - HYPERTENSION [None]
  - FUNGAL INFECTION [None]
  - ATTENTION DEFICIT/HYPERACTIVITY DISORDER [None]
  - DEEP VEIN THROMBOSIS [None]
  - DEPRESSION [None]
  - ATELECTASIS [None]
  - VULVAL DISORDER [None]
  - HEPATIC STEATOSIS [None]
